FAERS Safety Report 6072629-9 (Version None)
Quarter: 2009Q1

REPORT INFORMATION
  Report Type: 
  Country: None (occurrence: None)
  Receive Date: 20090210
  Receipt Date: 20090130
  Transmission Date: 20090719
  Serious: Yes (Other)
  Sender: FDA-Public Use
  Company Number: US-BAXTER-2009BH001658

PATIENT
  Sex: Female

DRUGS (1)
  1. HEPARIN [Suspect]
     Indication: PROPHYLAXIS
     Route: 065

REACTIONS (3)
  - CHEST PAIN [None]
  - DYSPNOEA [None]
  - HYPOTENSION [None]
